FAERS Safety Report 14279727 (Version 1)
Quarter: 2017Q4

REPORT INFORMATION
  Report Type: Spontaneous
  Country: US (occurrence: US)
  Receive Date: 20171213
  Receipt Date: 20171213
  Transmission Date: 20180321
  Serious: No
  Sender: FDA-Public Use
  Company Number: US-009507513-1711USA008382

PATIENT
  Age: 26 Year
  Sex: Female

DRUGS (6)
  1. CELESTONE SOLUSPAN [Suspect]
     Active Substance: BETAMETHASONE ACETATE\BETAMETHASONE SODIUM PHOSPHATE
     Indication: TENDON INJURY
  2. LIDOCAINE. [Suspect]
     Active Substance: LIDOCAINE
     Indication: TENDON DISORDER
  3. LIDOCAINE. [Suspect]
     Active Substance: LIDOCAINE
     Indication: JOINT INJURY
     Dosage: 0.5 ML, UNK
     Route: 050
  4. CELESTONE SOLUSPAN [Suspect]
     Active Substance: BETAMETHASONE ACETATE\BETAMETHASONE SODIUM PHOSPHATE
     Indication: JOINT INJURY
     Dosage: 0.5 ML, UNK
     Route: 050
  5. LIDOCAINE. [Suspect]
     Active Substance: LIDOCAINE
     Indication: TENDON DISORDER
  6. CELESTONE SOLUSPAN [Suspect]
     Active Substance: BETAMETHASONE ACETATE\BETAMETHASONE SODIUM PHOSPHATE
     Indication: TENDON DISORDER

REACTIONS (1)
  - Drug ineffective [Recovering/Resolving]
